FAERS Safety Report 8198044-X (Version None)
Quarter: 2012Q1

REPORT INFORMATION
  Report Type: 
  Country: None (occurrence: None)
  Receive Date: 20120309
  Receipt Date: 20120305
  Transmission Date: 20120608
  Serious: Yes (Death, Hospitalization)
  Sender: FDA-Public Use
  Company Number: GB-JNJFOC-20111200151

PATIENT
  Sex: Male

DRUGS (2)
  1. XEPLION [Suspect]
     Indication: BIPOLAR DISORDER
     Route: 030
     Dates: start: 20111003, end: 20111003
  2. XEPLION [Suspect]
     Indication: SCHIZOPHRENIA, PARANOID TYPE
     Route: 030
     Dates: start: 20111003, end: 20111003

REACTIONS (5)
  - DIZZINESS [None]
  - TACHYCARDIA [None]
  - SEPSIS [None]
  - HYPOXIA [None]
  - DYSPNOEA [None]
